FAERS Safety Report 15347015 (Version 1)
Quarter: 2018Q4

REPORT INFORMATION
  Report Type: Spontaneous
  Country: US (occurrence: US)
  Receive Date: 20180904
  Receipt Date: 20180904
  Transmission Date: 20190204
  Serious: Yes (Other)
  Sender: FDA-Public Use
  Company Number: US-LPDUSPRD-20181621

PATIENT
  Age: 23 Year
  Sex: Male

DRUGS (1)
  1. EPINEPHRINE INJECTION, USP (0517-1071-01) [Suspect]
     Active Substance: EPINEPHRINE
     Dosage: UNKNOWN
     Route: 030

REACTIONS (1)
  - Acute myocardial infarction [Unknown]
